FAERS Safety Report 8843642 (Version 1)
Quarter: 2012Q4

REPORT INFORMATION
  Report Type: 
  Country: US (occurrence: US)
  Receive Date: 20121016
  Receipt Date: 20121016
  Transmission Date: 20130627
  Serious: Yes (Hospitalization, Other)
  Sender: FDA-Public Use
  Company Number: US-PFIZER INC-2012252609

PATIENT
  Age: 69 Year
  Sex: Female
  Weight: 57.6 kg

DRUGS (5)
  1. CYTOMEL [Suspect]
     Indication: HYPOTHYROIDISM
     Dosage: 25 ug, 4x/day
     Route: 048
  2. CYTOMEL [Suspect]
     Indication: ADDISON^S DISEASE
  3. HYDROCORTISONE [Concomitant]
     Dosage: UNK
     Dates: end: 201210
  4. CALCIUM CHLORIDE [Concomitant]
     Dosage: UNK
     Dates: end: 201210
  5. VITAMIN C [Concomitant]
     Dosage: UNK
     Dates: end: 201210

REACTIONS (2)
  - Pancreatitis [Not Recovered/Not Resolved]
  - Pain [Not Recovered/Not Resolved]
